FAERS Safety Report 10071993 (Version 1)
Quarter: 2014Q2

REPORT INFORMATION
  Report Type: Spontaneous
  Country: US (occurrence: None)
  Receive Date: 20140409
  Receipt Date: 20140409
  Transmission Date: 20141212
  Serious: Yes (Death)
  Sender: FDA-Public Use
  Company Number: 2014P1002765

PATIENT
  Age: 14 Month
  Sex: Female

DRUGS (3)
  1. METHYLPREDNISOLONE [Suspect]
     Indication: ACUTE GRAFT VERSUS HOST DISEASE IN SKIN
  2. ACYCLOVIR [Concomitant]
  3. GANCICLOVIR [Concomitant]

REACTIONS (3)
  - Atelectasis [None]
  - Acute graft versus host disease in skin [None]
  - Condition aggravated [None]
